FAERS Safety Report 7426353-8 (Version None)
Quarter: 2011Q2

REPORT INFORMATION
  Report Type: 
  Country: None (occurrence: None)
  Receive Date: 20110420
  Receipt Date: 20110412
  Transmission Date: 20111010
  Serious: Yes (Hospitalization)
  Sender: FDA-Public Use
  Company Number: Z0008579B

PATIENT
  Age: 60 Year
  Sex: Female
  Weight: 64.5 kg

DRUGS (1)
  1. ZANAMIVIR [Suspect]
     Indication: INFLUENZA
     Dosage: 600MG TWICE PER DAY
     Route: 042
     Dates: start: 20110311

REACTIONS (1)
  - ENCEPHALOPATHY [None]
